FAERS Safety Report 14646920 (Version 2)
Quarter: 2018Q3

REPORT INFORMATION
  Report Type: Spontaneous
  Country: FR (occurrence: FR)
  Receive Date: 20180316
  Receipt Date: 20180731
  Transmission Date: 20181010
  Serious: Yes (Disabling, Other)
  Sender: FDA-Public Use
  Company Number: FR-MERCK KGAA-2043908

PATIENT
  Age: 69 Year
  Sex: Female
  Weight: 67 kg

DRUGS (6)
  1. COLECALCIFEROL [Concomitant]
     Active Substance: CHOLECALCIFEROL
  2. NOVOTHYROX [Suspect]
     Active Substance: LEVOTHYROXINE SODIUM
     Dates: end: 20171026
  3. LEVOTHYROX 25 NF [Suspect]
     Active Substance: LEVOTHYROXINE SODIUM
  4. NOVOTHYROX [Suspect]
     Active Substance: LEVOTHYROXINE SODIUM
     Indication: POST PROCEDURAL HYPOTHYROIDISM
     Dates: start: 2017
  5. NEBIVOLOL. [Concomitant]
     Active Substance: NEBIVOLOL
  6. LIPANTHYL [Concomitant]
     Active Substance: FENOFIBRATE

REACTIONS (11)
  - Alopecia [Recovering/Resolving]
  - Hot flush [Not Recovered/Not Resolved]
  - Anxiety [Recovering/Resolving]
  - Tremor [Recovering/Resolving]
  - Palpitations [Recovering/Resolving]
  - Hyperhidrosis [Recovering/Resolving]
  - Nausea [Recovering/Resolving]
  - Muscle spasms [Recovering/Resolving]
  - Herpes zoster [Recovering/Resolving]
  - Insomnia [Recovering/Resolving]
  - Alcohol poisoning [Recovering/Resolving]

NARRATIVE: CASE EVENT DATE: 2017
